FAERS Safety Report 8182146-8 (Version None)
Quarter: 2012Q1

REPORT INFORMATION
  Report Type: 
  Country: None (occurrence: None)
  Receive Date: 20120302
  Receipt Date: 20120220
  Transmission Date: 20120608
  Serious: Yes (Other)
  Sender: FDA-Public Use
  Company Number: US-ELI_LILLY_AND_COMPANY-US201202006029

PATIENT
  Sex: Male
  Weight: 93.878 kg

DRUGS (7)
  1. PROZAC [Suspect]
     Dosage: UNK, UNKNOWN
     Route: 065
     Dates: start: 19800101
  2. PAXIL [Concomitant]
     Dosage: UNK, UNKNOWN
     Route: 065
     Dates: start: 19800101
  3. AMARYL [Concomitant]
     Indication: DIABETES MELLITUS
     Dosage: 2 MG, QD
     Route: 048
  4. PAMELOR [Concomitant]
     Dosage: UNK, UNKNOWN
     Route: 065
     Dates: start: 19800101
  5. LUDIOMIL                           /00331902/ [Concomitant]
     Dosage: UNK, UNKNOWN
     Route: 065
     Dates: start: 19800101
  6. SURMONTIL [Concomitant]
     Dosage: UNK, UNKNOWN
     Route: 065
     Dates: start: 19800101
  7. ACTOS [Concomitant]
     Indication: DIABETES MELLITUS
     Dosage: UNK, QD

REACTIONS (3)
  - MYDRIASIS [None]
  - FEELING ABNORMAL [None]
  - SWOLLEN TONGUE [None]
